FAERS Safety Report 24606494 (Version 1)
Quarter: 2024Q4

REPORT INFORMATION
  Report Type: Spontaneous
  Country: FR (occurrence: FR)
  Receive Date: 20241112
  Receipt Date: 20241112
  Transmission Date: 20250115
  Serious: Yes (Hospitalization)
  Sender: DR REDDYS
  Company Number: None

PATIENT
  Age: 49 Year
  Sex: Male

DRUGS (3)
  1. DAPTOMYCIN [Suspect]
     Active Substance: DAPTOMYCIN
     Indication: Infection
     Route: 042
     Dates: start: 20240726, end: 20240731
  2. ERTAPENEM [Suspect]
     Active Substance: ERTAPENEM
     Indication: Infection
     Route: 042
     Dates: start: 20240726, end: 20240731
  3. CASPOFUNGIN [Suspect]
     Active Substance: CASPOFUNGIN
     Indication: Systemic candida
     Route: 042
     Dates: start: 20240724, end: 20240731

REACTIONS (1)
  - Rash maculo-papular [Recovering/Resolving]

NARRATIVE: CASE EVENT DATE: 20240731
